FAERS Safety Report 18427638 (Version 1)
Quarter: 2020Q4

REPORT INFORMATION
  Report Type: Other
  Country: DK (occurrence: DK)
  Receive Date: 20201026
  Receipt Date: 20201026
  Transmission Date: 20210114
  Serious: Yes (Hospitalization)
  Sender: FDA-Public Use
  Company Number: DK-KNIGHT THERAPEUTICS (USA) INC.-2093117

PATIENT
  Age: 19 Year
  Sex: Male

DRUGS (4)
  1. MILTEFOSINE [Suspect]
     Active Substance: MILTEFOSINE
     Dates: start: 201703, end: 202006
  2. INTRAVENOUS IMMUNOGLOBULIN (IVIG) [Concomitant]
     Active Substance: HUMAN IMMUNOGLOBULIN G
  3. IMPAVIDO [Suspect]
     Active Substance: MILTEFOSINE
     Indication: MUCOCUTANEOUS LEISHMANIASIS
     Dates: start: 201703, end: 202006
  4. SUBCUTANEOUS IMMUNOGLOBULIN (SCIG) [Concomitant]

REACTIONS (3)
  - Intentional product misuse [Recovered/Resolved]
  - Off label use [Recovered/Resolved]
  - Disease recurrence [Recovered/Resolved]

NARRATIVE: CASE EVENT DATE: 201803
